FAERS Safety Report 4651138-5 (Version None)
Quarter: 2005Q2

REPORT INFORMATION
  Report Type: 
  Country: None (occurrence: None)
  Receive Date: 20050503
  Receipt Date: 20050422
  Transmission Date: 20051028
  Serious: Yes (Hospitalization, Other)
  Sender: FDA-Public Use
  Company Number: CA-JNJFOC-20050403399

PATIENT
  Sex: Female
  Weight: 52.16 kg

DRUGS (7)
  1. TOPAMAX [Suspect]
  2. TOPAMAX [Suspect]
     Indication: MIGRAINE
  3. LARGACTIL [Suspect]
     Route: 065
  4. LARGACTIL [Suspect]
     Indication: MIGRAINE
     Route: 065
  5. AVALIDE [Concomitant]
     Route: 065
  6. AVALIDE [Concomitant]
     Indication: DRUG USE FOR UNKNOWN INDICATION
     Route: 065
  7. NADOLOL [Concomitant]
     Indication: DRUG USE FOR UNKNOWN INDICATION
     Route: 065

REACTIONS (15)
  - ADVERSE DRUG REACTION [None]
  - ANOREXIA [None]
  - ARRHYTHMIA [None]
  - DRY MOUTH [None]
  - FATIGUE [None]
  - HEART RATE INCREASED [None]
  - HYPERTENSION [None]
  - HYPOTENSION [None]
  - LOSS OF CONSCIOUSNESS [None]
  - MIGRAINE [None]
  - ORAL DISCOMFORT [None]
  - PALPITATIONS [None]
  - SENSATION OF HEAVINESS [None]
  - SHOCK [None]
  - SOMNOLENCE [None]
